FAERS Safety Report 15013061 (Version 1)
Quarter: 2018Q2

REPORT INFORMATION
  Report Type: Spontaneous
  Country: JP (occurrence: JP)
  Receive Date: 20180614
  Receipt Date: 20180614
  Transmission Date: 20180711
  Serious: Yes (Death, Hospitalization, Other)
  Sender: FDA-Public Use
  Company Number: PHJP2018JP001268

PATIENT
  Age: 83 Year
  Sex: Male

DRUGS (2)
  1. GLIVEC [Suspect]
     Active Substance: IMATINIB MESYLATE
     Indication: CHRONIC MYELOID LEUKAEMIA
     Dosage: 100 MG, BID(1 TABLET IN THE MORNING AND 1 TABLET IN THE EVENING)
     Route: 048
     Dates: start: 2017
  2. GLIVEC [Suspect]
     Active Substance: IMATINIB MESYLATE
     Dosage: 300 MG, BID
     Route: 048

REACTIONS (5)
  - Onychomadesis [Unknown]
  - Cardiac failure [Fatal]
  - Swelling [Fatal]
  - Myelodysplastic syndrome [Unknown]
  - Nail discolouration [Unknown]
